FAERS Safety Report 10430497 (Version 1)
Quarter: 2014Q3

REPORT INFORMATION
  Report Type: Spontaneous
  Country: US (occurrence: None)
  Receive Date: 20140903
  Receipt Date: 20140903
  Transmission Date: 20150326
  Serious: Yes (Hospitalization, Disabling)
  Sender: FDA-Public Use
  Company Number: None

PATIENT
  Age: 56 Year
  Sex: Female
  Weight: 80.74 kg

DRUGS (1)
  1. METHOTREXATE 2.5 MG EACH [Suspect]
     Active Substance: METHOTREXATE
     Indication: PSORIATIC ARTHROPATHY
     Dosage: 6 X2.5 WEEKLY, WEEKLY, TAKEN BY MOUTH
     Route: 048
     Dates: start: 20140312, end: 20140814

REACTIONS (7)
  - Drug ineffective [None]
  - Interstitial lung disease [None]
  - Cough [None]
  - Bronchitis [None]
  - Muscle rigidity [None]
  - Muscle spasms [None]
  - Toxicity to various agents [None]

NARRATIVE: CASE EVENT DATE: 20140822
